FAERS Safety Report 21396019 (Version 1)
Quarter: 2022Q3

REPORT INFORMATION
  Report Type: Spontaneous
  Country: AU (occurrence: AU)
  Receive Date: 20220930
  Receipt Date: 20220930
  Transmission Date: 20221026
  Serious: Yes (Other)
  Sender: FDA-Public Use
  Company Number: AU-TAKEDA-2022TUS067344

PATIENT
  Age: 78 Year
  Sex: Female

DRUGS (3)
  1. PANTOPRAZOLE SODIUM [Suspect]
     Active Substance: PANTOPRAZOLE SODIUM
     Indication: Gastrooesophageal reflux disease
     Dosage: 40 MG, 1X/DAY
     Route: 048
  2. BRICANYL [Concomitant]
     Active Substance: TERBUTALINE SULFATE
     Indication: Asthma
     Dosage: 200 UG, 1X/DAY
     Route: 065
  3. SERETIDE [Concomitant]
     Active Substance: FLUTICASONE PROPIONATE\SALMETEROL XINAFOATE
     Dosage: 250 MG, 2X/DAY
     Route: 065

REACTIONS (4)
  - Ulcer haemorrhage [Unknown]
  - Colitis ulcerative [Unknown]
  - Product residue present [Unknown]
  - Gastrooesophageal reflux disease [Unknown]
